FAERS Safety Report 8666379 (Version 3)
Quarter: 2013Q4

REPORT INFORMATION
  Report Type: Spontaneous
  Country: US (occurrence: US)
  Receive Date: 20120716
  Receipt Date: 20131101
  Transmission Date: 20140711
  Serious: Yes (Hospitalization)
  Sender: FDA-Public Use
  Company Number: US-009507513-1207USA002474

PATIENT
  Age: 72 Year
  Sex: Male

DRUGS (8)
  1. ANGIOMAX [Concomitant]
  2. PLAVEX [Concomitant]
     Dosage: 300 UNK, UNK
  3. PLAVEX [Concomitant]
     Dosage: 75 UNK, UNK
  4. ASPIRIN [Concomitant]
     Dosage: 325 UNK, UNK
  5. PEPCID [Concomitant]
     Dosage: 20 MG, BID
  6. LOPRESSOR [Concomitant]
     Dosage: 25 MG, BID
  7. ZOCOR [Concomitant]
     Dosage: 10 MG, QD
  8. INTEGRILIN [Suspect]
     Indication: ACUTE CORONARY SYNDROME
     Dosage: UNK
     Dates: start: 20120606, end: 20120606

REACTIONS (1)
  - Thrombocytopenia [Recovered/Resolved]
